FAERS Safety Report 8422317 (Version 2)
Quarter: 2013Q2

REPORT INFORMATION
  Report Type: Spontaneous
  Country: US (occurrence: None)
  Receive Date: 20111227
  Receipt Date: 20120703
  Transmission Date: 20140414
  Serious: No
  Sender: FDA-Public Use
  Company Number: PHEH2011US08043

PATIENT
  Age: 38 Year
  Sex: Female

DRUGS (5)
  1. GILENYA [Suspect]
     Indication: MULTIPLE SCLEROSIS
     Route: 048
     Dates: start: 20111025, end: 20120201
  2. AMBIEN [Concomitant]
  3. GABAPENTIN (GABAPENTIN) CAPSULE [Concomitant]
  4. ?HYDROCHLOROTHIAZIDE (HYDROCHLOROTHIAZIDE) TABLET [Concomitant]
  5. LORTAB [Concomitant]

REACTIONS (4)
  - MULTIPLE SCLEROSIS RELAPSE [None]
  - VAGINAL HAEMORRHAGE [None]
  - MUSCULOSKELETAL PAIN [None]
  - BACK PAIN [None]
